FAERS Safety Report 7354038-5 (Version None)
Quarter: 2011Q1

REPORT INFORMATION
  Report Type: 
  Country: None (occurrence: None)
  Receive Date: 20110315
  Receipt Date: 20110303
  Transmission Date: 20110831
  Serious: Yes (Hospitalization)
  Sender: FDA-Public Use
  Company Number: RU-GENENTECH-314893

PATIENT
  Age: 14 Year
  Sex: Female

DRUGS (2)
  1. MABTHERA [Suspect]
     Indication: LUPUS NEPHRITIS
     Dosage: 500 MG, UNK
     Route: 042
     Dates: start: 20110221, end: 20110221
  2. PREDNISONE [Concomitant]

REACTIONS (5)
  - INJECTION SITE EXTRAVASATION [None]
  - LEUKOCYTOSIS [None]
  - CANDIDIASIS [None]
  - TOXIC SKIN ERUPTION [None]
  - RED BLOOD CELL SEDIMENTATION RATE INCREASED [None]
